FAERS Safety Report 7230029-X (Version None)
Quarter: 2011Q1

REPORT INFORMATION
  Report Type: 
  Country: None (occurrence: None)
  Receive Date: 20110118
  Receipt Date: 20110113
  Transmission Date: 20110831
  Serious: No
  Sender: FDA-Public Use
  Company Number: US-ASTRAZENECA-2008UW12754

PATIENT
  Age: 592 Month
  Sex: Female
  Weight: 89.8 kg

DRUGS (7)
  1. SYNTHROID [Concomitant]
     Indication: HYPOTHYROIDISM
     Dosage: QD
     Dates: start: 20060929
  2. SEROQUEL [Suspect]
     Route: 048
     Dates: start: 20001222
  3. HALDOL [Concomitant]
     Indication: SCHIZOPHRENIA
  4. TRAZODONE [Concomitant]
     Dates: start: 20001222
  5. SEROQUEL [Suspect]
     Indication: SCHIZOPHRENIA
     Dosage: 100-400 MG
     Route: 048
     Dates: start: 20001201, end: 20060701
  6. GEODON [Concomitant]
     Indication: SCHIZOPHRENIA
  7. GEODON [Concomitant]
     Dates: start: 20060928

REACTIONS (1)
  - TYPE 2 DIABETES MELLITUS [None]
